FAERS Safety Report 5342170-7 (Version None)
Quarter: 2007Q2

REPORT INFORMATION
  Report Type: 
  Country: None (occurrence: None)
  Receive Date: 20070601
  Receipt Date: 20070529
  Transmission Date: 20071010
  Serious: Yes (Hospitalization)
  Sender: FDA-Public Use
  Company Number: B0444164A

PATIENT
  Age: 68 Year
  Sex: Female
  Weight: 41 kg

DRUGS (11)
  1. VALTREX [Suspect]
     Indication: HERPES ZOSTER
     Dosage: 500MG TWICE PER DAY
     Route: 048
     Dates: start: 20061021, end: 20061022
  2. ZOVIRAX [Suspect]
     Indication: HERPES ZOSTER
     Dosage: 500MG PER DAY
     Route: 042
     Dates: start: 20061020, end: 20061020
  3. ZOVIRAX [Suspect]
     Dosage: 400MG PER DAY
     Route: 048
     Dates: start: 20061023, end: 20061023
  4. RENAGEL [Concomitant]
     Dosage: 1500MG PER DAY
     Route: 048
  5. GASTER D [Concomitant]
     Indication: GASTRITIS
     Dosage: 10MG PER DAY
     Route: 048
  6. ASPIRIN [Concomitant]
     Indication: SHUNT THROMBOSIS
     Dosage: 100MG PER DAY
     Route: 048
  7. FULSTAN [Concomitant]
     Route: 048
  8. ADALAT [Concomitant]
     Route: 048
  9. PURSENNID [Concomitant]
     Indication: CONSTIPATION
     Dosage: 48MG PER DAY
     Route: 048
  10. ALOSENN [Concomitant]
     Indication: CONSTIPATION
     Dosage: 2G PER DAY
     Route: 048
  11. TANKARU [Concomitant]
     Dosage: 3000MG PER DAY
     Route: 048

REACTIONS (6)
  - ANXIETY [None]
  - CONFUSIONAL STATE [None]
  - ENCEPHALOPATHY [None]
  - HALLUCINATION [None]
  - NAUSEA [None]
  - TOXIC INDUCED ENCEPHALOPATHY [None]
